FAERS Safety Report 19309764 (Version 2)
Quarter: 2021Q2

REPORT INFORMATION
  Report Type: Spontaneous
  Country: IT (occurrence: IT)
  Receive Date: 20210526
  Receipt Date: 20210630
  Transmission Date: 20210717
  Serious: Yes (Other)
  Sender: FDA-Public Use
  Company Number: IT-UCBSA-2021023372

PATIENT
  Age: 57 Year
  Sex: Male

DRUGS (5)
  1. KEPPRA [Concomitant]
     Active Substance: LEVETIRACETAM
     Indication: PRODUCT USED FOR UNKNOWN INDICATION
     Dosage: UNK
     Dates: end: 2019
  2. VIMPAT [Suspect]
     Active Substance: LACOSAMIDE
     Dosage: DECREASED THE DOSE TO 100 PLUS 150
     Route: 048
  3. VIMPAT [Suspect]
     Active Substance: LACOSAMIDE
     Indication: EPILEPSY
     Dosage: 200 MILLIGRAM, 2X/DAY (BID)
     Route: 048
     Dates: start: 201902
  4. VIMPAT [Suspect]
     Active Substance: LACOSAMIDE
     Dosage: 150 MILLIGRAM, 2X/DAY (BID)
     Route: 048
  5. DUOTENS [Concomitant]
     Indication: PRODUCT USED FOR UNKNOWN INDICATION
     Dosage: UNK

REACTIONS (15)
  - Libido decreased [Recovering/Resolving]
  - Somnolence [Recovering/Resolving]
  - Amnesia [Recovering/Resolving]
  - Abnormal behaviour [Recovering/Resolving]
  - Depersonalisation/derealisation disorder [Recovering/Resolving]
  - Product use issue [Unknown]
  - Diplopia [Recovering/Resolving]
  - Eczema [Recovered/Resolved]
  - Eye movement disorder [Recovering/Resolving]
  - Seborrhoeic dermatitis [Recovered/Resolved]
  - Priapism [Recovered/Resolved]
  - Tinnitus [Not Recovered/Not Resolved]
  - Hypoaesthesia [Recovering/Resolving]
  - Dysphagia [Recovering/Resolving]
  - Irritability [Recovering/Resolving]

NARRATIVE: CASE EVENT DATE: 201902
